FAERS Safety Report 4966875-2 (Version None)
Quarter: 2006Q2

REPORT INFORMATION
  Report Type: 
  Country: None (occurrence: None)
  Receive Date: 20060407
  Receipt Date: 20050930
  Transmission Date: 20061013
  Serious: Yes (Hospitalization, Disabling)
  Sender: FDA-Public Use
  Company Number: US-MERCK-0510USA00871

PATIENT
  Age: 47 Year
  Sex: Male
  Weight: 147 kg

DRUGS (4)
  1. VIOXX [Suspect]
     Indication: CHEST PAIN
     Route: 048
     Dates: start: 20030701, end: 20040801
  2. VIOXX [Suspect]
     Route: 048
     Dates: start: 20030601, end: 20030701
  3. VIOXX [Suspect]
     Indication: MUSCULOSKELETAL DISCOMFORT
     Route: 048
     Dates: start: 20030701, end: 20040801
  4. VIOXX [Suspect]
     Route: 048
     Dates: start: 20030601, end: 20030701

REACTIONS (2)
  - MYOCARDIAL INFARCTION [None]
  - OTITIS EXTERNA [None]
